FAERS Safety Report 6216502-1 (Version None)
Quarter: 2009Q2

REPORT INFORMATION
  Report Type: 
  Country: None (occurrence: None)
  Receive Date: 20090605
  Receipt Date: 20090527
  Transmission Date: 20091009
  Serious: Yes (Hospitalization)
  Sender: FDA-Public Use
  Company Number: FR-MERCK-0905FRA00093

PATIENT
  Age: 88 Year
  Sex: Female

DRUGS (8)
  1. NOROXIN [Suspect]
     Route: 048
  2. ACETAMINOPHEN AND PROPOXYPHENE HYDROCHLORIDE [Suspect]
     Route: 048
  3. ATORVASTATIN CALCIUM [Suspect]
     Route: 048
  4. BISOPROLOL FUMARATE [Suspect]
     Route: 065
  5. ESTAZOLAM [Suspect]
     Route: 048
  6. SPIRONOLACTONE [Suspect]
     Route: 048
  7. FERROUS SULFATE [Concomitant]
     Route: 065
  8. ACETAMINOPHEN [Concomitant]
     Route: 065

REACTIONS (1)
  - FALL [None]
